FAERS Safety Report 20292353 (Version 1)
Quarter: 2022Q1

REPORT INFORMATION
  Report Type: Spontaneous
  Country: US (occurrence: US)
  Receive Date: 20220104
  Receipt Date: 20220104
  Transmission Date: 20220424
  Serious: Yes (Other)
  Sender: FDA-Public Use
  Company Number: US-PFIZER INC-202101249733

PATIENT
  Age: 80 Year
  Sex: Male

DRUGS (1)
  1. VYNDAMAX [Suspect]
     Active Substance: TAFAMIDIS
     Dosage: 61 MG

REACTIONS (22)
  - Cardiac amyloidosis [Unknown]
  - Coronary artery occlusion [Unknown]
  - Chronic kidney disease [Unknown]
  - Type 2 diabetes mellitus [Unknown]
  - Cardiac amyloidosis [Unknown]
  - Renal tubular necrosis [Unknown]
  - Acute kidney injury [Unknown]
  - Cardiac failure [Unknown]
  - Myocardial infarction [Unknown]
  - Oedema peripheral [Unknown]
  - Chronic left ventricular failure [Unknown]
  - Fatigue [Unknown]
  - Arteriosclerosis [Unknown]
  - Essential hypertension [Unknown]
  - Constipation [Unknown]
  - Gravitational oedema [Unknown]
  - Diarrhoea [Unknown]
  - Dyspnoea [Unknown]
  - Gastroenteritis [Unknown]
  - Bundle branch block right [Unknown]
  - Peripheral swelling [Unknown]
  - Vascular pain [Unknown]
